FAERS Safety Report 7636161-0 (Version None)
Quarter: 2011Q3

REPORT INFORMATION
  Report Type: 
  Country: None (occurrence: None)
  Receive Date: 20110726
  Receipt Date: 20110713
  Transmission Date: 20111222
  Serious: Yes (Hospitalization)
  Sender: FDA-Public Use
  Company Number: JP-UCBSA-037588

PATIENT
  Sex: Female

DRUGS (3)
  1. CERTOLIZUMAB PEGOL [Suspect]
     Indication: RHEUMATOID ARTHRITIS
     Route: 058
     Dates: start: 20100630, end: 20110701
  2. METHOTREXATE [Concomitant]
     Dates: start: 20091013, end: 20110420
  3. METHOTREXATE [Concomitant]
     Dates: start: 20110426

REACTIONS (1)
  - PNEUMONIA [None]
